FAERS Safety Report 11001249 (Version 2)
Quarter: 2016Q2

REPORT INFORMATION
  Report Type: Spontaneous
  Country: US (occurrence: US)
  Receive Date: 20150408
  Receipt Date: 20160412
  Transmission Date: 20160815
  Serious: No
  Sender: FDA-Public Use
  Company Number: US-SA-2015SA018012

PATIENT
  Age: 82 Year
  Sex: Male

DRUGS (4)
  1. ALLEGRA [Suspect]
     Active Substance: FEXOFENADINE HYDROCHLORIDE
     Indication: HYPERSENSITIVITY
     Route: 048
  2. ALLEGRA [Suspect]
     Active Substance: FEXOFENADINE HYDROCHLORIDE
     Indication: RHINORRHOEA
     Route: 048
  3. ALLEGRA [Suspect]
     Active Substance: FEXOFENADINE HYDROCHLORIDE
     Indication: HYPERSENSITIVITY
     Dosage: FOR 8 DAYS
     Route: 048
     Dates: start: 2011
  4. ALLEGRA [Suspect]
     Active Substance: FEXOFENADINE HYDROCHLORIDE
     Indication: RHINORRHOEA
     Dosage: FOR 8 DAYS
     Route: 048
     Dates: start: 2011

REACTIONS (5)
  - Fatigue [Unknown]
  - Somnolence [Unknown]
  - Feeling abnormal [Unknown]
  - Sluggishness [Unknown]
  - Body temperature increased [Unknown]
